FAERS Safety Report 8088985-6 (Version None)
Quarter: 2012Q1

REPORT INFORMATION
  Report Type: 
  Country: None (occurrence: None)
  Receive Date: 20120128
  Receipt Date: 20110708
  Transmission Date: 20120608
  Serious: No
  Sender: FDA-Public Use
  Company Number: US-ABBOTT-11P-163-0837207-00

PATIENT
  Sex: Female

DRUGS (2)
  1. UNKNOWN TREATMENT [Concomitant]
     Indication: PRODUCT USED FOR UNKNOWN INDICATION
  2. HUMIRA [Suspect]
     Indication: PSORIASIS
     Dosage: PSORIASIS STARTER PACK
     Route: 058
     Dates: start: 20110624

REACTIONS (1)
  - URTICARIA [None]
